FAERS Safety Report 25381455 (Version 1)
Quarter: 2025Q2

REPORT INFORMATION
  Report Type: Spontaneous
  Country: PT (occurrence: PT)
  Receive Date: 20250530
  Receipt Date: 20250530
  Transmission Date: 20250717
  Serious: Yes (Life-Threatening, Hospitalization)
  Sender: MERCK SHARP & DOHME LLC
  Company Number: PT-009507513-2290094

PATIENT
  Sex: Female

DRUGS (1)
  1. KEYTRUDA [Suspect]
     Active Substance: PEMBROLIZUMAB
     Indication: Triple negative breast cancer

REACTIONS (4)
  - Acute myocardial infarction [Recovered/Resolved]
  - Type 1 diabetes mellitus [Recovered/Resolved]
  - Thyroiditis [Recovered/Resolved]
  - Hypophysitis [Recovered/Resolved]
